FAERS Safety Report 4431152-5 (Version None)
Quarter: 2004Q3

REPORT INFORMATION
  Report Type: 
  Country: None (occurrence: None)
  Receive Date: 20040824
  Receipt Date: 20040816
  Transmission Date: 20050211
  Serious: Yes (Other)
  Sender: FDA-Public Use
  Company Number: BE-JNJFOC-20040607312

PATIENT
  Age: 21 Year
  Sex: Female

DRUGS (6)
  1. PROPULSID [Suspect]
     Route: 049
  2. PANTOPRAZOLE SODIUM [Concomitant]
     Dosage: DAILY DOSE = 40.
     Route: 049
  3. PRIMPERAN INJ [Concomitant]
     Indication: NAUSEA
     Route: 049
  4. PRIMPERAN INJ [Concomitant]
     Route: 049
  5. MOTILIUM INSTANT [Concomitant]
     Indication: NAUSEA
     Route: 049
  6. MOTILIUM INSTANT [Concomitant]
     Route: 049

REACTIONS (4)
  - BUNDLE BRANCH BLOCK RIGHT [None]
  - PALPITATIONS [None]
  - SINUS TACHYCARDIA [None]
  - STRESS SYMPTOMS [None]
